FAERS Safety Report 24395560 (Version 1)
Quarter: 2024Q4

REPORT INFORMATION
  Report Type: Spontaneous
  Country: AR (occurrence: AR)
  Receive Date: 20241004
  Receipt Date: 20241004
  Transmission Date: 20250114
  Serious: Yes (Other)
  Sender: SANDOZ
  Company Number: AR-002147023-NVSC2024AR181320

PATIENT
  Sex: Male

DRUGS (1)
  1. AZOPT [Suspect]
     Active Substance: BRINZOLAMIDE
     Indication: Glaucoma
     Dosage: 5 ML, BID, ON THE EYE
     Route: 047
     Dates: start: 2022

REACTIONS (4)
  - Intraocular pressure fluctuation [Unknown]
  - Anxiety [Unknown]
  - Eye irritation [Unknown]
  - Eye pruritus [Unknown]
